FAERS Safety Report 17071285 (Version 1)
Quarter: 2019Q4

REPORT INFORMATION
  Report Type: Spontaneous
  Country: US (occurrence: US)
  Receive Date: 20191025
  Receipt Date: 20191025
  Transmission Date: 20200122
  Serious: Yes (Hospitalization)
  Sender: FDA-Public Use
  Company Number: None

PATIENT
  Age: 67 Year
  Sex: Female

DRUGS (15)
  1. LEVOTHYROXIN [Concomitant]
     Active Substance: LEVOTHYROXINE
  2. NITRO-DUR [Concomitant]
     Active Substance: NITROGLYCERIN
  3. REPATHA [Suspect]
     Active Substance: EVOLOCUMAB
     Indication: ARTERIOSCLEROSIS
     Dosage: ?          OTHER FREQUENCY:EVERY2WEEKS ;?
     Route: 058
     Dates: start: 20180623
  4. DIPHENHIST [Concomitant]
     Active Substance: DIPHENHYDRAMINE HYDROCHLORIDE
  5. POT CHLORIDE [Concomitant]
     Active Substance: POTASSIUM CHLORIDE
  6. ATORVASTATIN [Concomitant]
     Active Substance: ATORVASTATIN
  7. VITAMIN D [Concomitant]
     Active Substance: VITAMIN D NOS
  8. FENTANYL. [Concomitant]
     Active Substance: FENTANYL
  9. SPIRONOLACT [Concomitant]
     Active Substance: SPIRONOLACTONE
  10. CLONZEPAM [Concomitant]
     Active Substance: CLONAZEPAM
  11. FLUOXETINE [Concomitant]
     Active Substance: FLUOXETINE HYDROCHLORIDE
  12. FUROSEMIDE. [Concomitant]
     Active Substance: FUROSEMIDE
  13. NITROGLYCERN [Concomitant]
  14. ISOSORB MONO [Concomitant]
     Active Substance: ISOSORBIDE MONONITRATE
  15. CLOPIDOGREL [Concomitant]
     Active Substance: CLOPIDOGREL BISULFATE

REACTIONS (1)
  - Cardiac operation [None]

NARRATIVE: CASE EVENT DATE: 20191022
